FAERS Safety Report 16264644 (Version 4)
Quarter: 2020Q1

REPORT INFORMATION
  Report Type: Spontaneous
  Country: US (occurrence: US)
  Receive Date: 20190502
  Receipt Date: 20200306
  Transmission Date: 20200409
  Serious: No
  Sender: FDA-Public Use
  Company Number: US-PFIZER INC-2019184100

PATIENT
  Age: 75 Year
  Sex: Female

DRUGS (1)
  1. PREMARIN [Suspect]
     Active Substance: ESTROGENS, CONJUGATED
     Dosage: 1 ML, (INSERT 1 ML VAGINALLY THREE TIMES A WEEK)
     Route: 067

REACTIONS (4)
  - Cystitis [Unknown]
  - Vaginal disorder [Unknown]
  - Vaginal infection [Unknown]
  - Off label use [Unknown]
